FAERS Safety Report 4601375-0 (Version None)
Quarter: 2005Q1

REPORT INFORMATION
  Report Type: 
  Country: None (occurrence: None)
  Receive Date: 20050308
  Receipt Date: 20050303
  Transmission Date: 20050727
  Serious: Yes (Hospitalization)
  Sender: FDA-Public Use
  Company Number: 200510782FR

PATIENT
  Age: 52 Year
  Sex: Female
  Weight: 71 kg

DRUGS (5)
  1. LOVENOX [Suspect]
     Route: 058
     Dates: start: 20050112, end: 20050114
  2. NEURONTIN [Suspect]
     Route: 048
     Dates: start: 20050113, end: 20050118
  3. ATARAX [Concomitant]
     Route: 048
  4. RIVOTRIL [Concomitant]
     Route: 048
  5. CORTANCYL 5 MG [Concomitant]
     Route: 048

REACTIONS (1)
  - HEPATITIS [None]
